FAERS Safety Report 7392375-9 (Version None)
Quarter: 2011Q2

REPORT INFORMATION
  Report Type: 
  Country: None (occurrence: None)
  Receive Date: 20110404
  Receipt Date: 20100802
  Transmission Date: 20111010
  Serious: Yes (Hospitalization)
  Sender: FDA-Public Use
  Company Number: US-BAYER-201019462NA

PATIENT
  Sex: Female
  Weight: 136 kg

DRUGS (14)
  1. LEVEMIR [Concomitant]
  2. ASCORBIC ACID [Concomitant]
  3. MELOXICAM [Concomitant]
  4. AVANDIA [Concomitant]
  5. LOVAZA [Concomitant]
  6. HYDROCHLOROTHIAZIDE [Concomitant]
  7. AMARYL [Concomitant]
  8. YAZ [Suspect]
     Indication: PRODUCT USED FOR UNKNOWN INDICATION
     Route: 048
     Dates: start: 20080112, end: 20080227
  9. LISINOPRIL [Concomitant]
  10. CINNAMON [Concomitant]
  11. GLIMEPIRIDE [Concomitant]
  12. LOVASTATIN [Concomitant]
  13. CHROMIUM PICOLINATE [Concomitant]
  14. UNCODEABLE ^UNCLASSIFIABLE^ [Concomitant]

REACTIONS (3)
  - OEDEMA PERIPHERAL [None]
  - DEEP VEIN THROMBOSIS [None]
  - PAIN IN EXTREMITY [None]
